FAERS Safety Report 19639596 (Version 1)
Quarter: 2021Q3

REPORT INFORMATION
  Report Type: Spontaneous
  Country: US (occurrence: US)
  Receive Date: 20210730
  Receipt Date: 20210730
  Transmission Date: 20211014
  Serious: Yes (Hospitalization, Other)
  Sender: FDA-Public Use
  Company Number: US-ASTRAZENECA-2021A646644

PATIENT
  Age: 24625 Day
  Sex: Female
  Weight: 120.7 kg

DRUGS (1)
  1. FASENRA [Suspect]
     Active Substance: BENRALIZUMAB
     Indication: ASTHMA
     Route: 058
     Dates: start: 20190109

REACTIONS (2)
  - Sepsis [Unknown]
  - Colitis [Unknown]

NARRATIVE: CASE EVENT DATE: 20210726
